FAERS Safety Report 9657851 (Version 2)
Quarter: 2013Q4

REPORT INFORMATION
  Report Type: Spontaneous
  Country: US (occurrence: US)
  Receive Date: 20131030
  Receipt Date: 20131129
  Transmission Date: 20140711
  Serious: No
  Sender: FDA-Public Use
  Company Number: US-009507513-1310USA009872

PATIENT
  Age: 55 Year
  Sex: Female

DRUGS (5)
  1. SAPHRIS [Suspect]
     Dosage: 20 MG, QD
     Route: 048
     Dates: start: 201210, end: 2012
  2. SAPHRIS [Suspect]
     Dosage: 5 MG, BID,BLACK CHERRY FLAVORED TABLETS
     Route: 048
     Dates: start: 20130921
  3. DIAZEPAM [Concomitant]
     Route: 048
  4. MARPLAN [Concomitant]
  5. ALBUTEROL [Concomitant]

REACTIONS (4)
  - Feeling abnormal [Recovered/Resolved]
  - Feeling drunk [Recovered/Resolved]
  - Breath alcohol test positive [Unknown]
  - Product taste abnormal [Unknown]
